FAERS Safety Report 4403594-5 (Version None)
Quarter: 2004Q3

REPORT INFORMATION
  Report Type: 
  Country: None (occurrence: None)
  Receive Date: 20040721
  Receipt Date: 20040630
  Transmission Date: 20050211
  Serious: Yes (Other)
  Sender: FDA-Public Use
  Company Number: 2004/00097

PATIENT

DRUGS (1)
  1. VENTOLIN [Suspect]
     Indication: ASTHMA
     Route: 055
     Dates: start: 20040626, end: 20040626

REACTIONS (4)
  - ASTHMA [None]
  - BRONCHOSPASM [None]
  - DRUG INEFFECTIVE [None]
  - WHEEZING [None]
